FAERS Safety Report 11297867 (Version 1)
Quarter: 2015Q3

REPORT INFORMATION
  Report Type: Spontaneous
  Country: US (occurrence: US)
  Receive Date: 20150722
  Receipt Date: 20150722
  Transmission Date: 20151125
  Serious: No
  Sender: FDA-Public Use
  Company Number: US-ELI_LILLY_AND_COMPANY-US201005006038

PATIENT
  Sex: Female
  Weight: 35.37 kg

DRUGS (8)
  1. MULTIVITAMIN [Concomitant]
     Active Substance: VITAMINS
     Dosage: UNK, DAILY (1/D)
  2. HUMATROPE [Suspect]
     Active Substance: SOMATROPIN
     Dosage: 0.8 MG, DAILY (1/D)
     Dates: start: 201003, end: 20100519
  3. PURINETHOL [Concomitant]
     Active Substance: MERCAPTOPURINE
     Dosage: 50 MG, DAILY (1/D)
  4. PROVENTIL /00139501/ [Concomitant]
     Dosage: UNK, AS NEEDED
     Route: 055
  5. NEXIUM [Concomitant]
     Active Substance: ESOMEPRAZOLE MAGNESIUM
     Dosage: 40 MG, DAILY (1/D)
  6. CALTRATE [Concomitant]
     Active Substance: CALCIUM CARBONATE
     Dosage: 600 MG, DAILY (1/D)
  7. HUMATROPE [Suspect]
     Active Substance: SOMATROPIN
     Dosage: 1 MG, DAILY (1/D)
     Dates: start: 20100519
  8. RHINOCORT [Concomitant]
     Active Substance: BUDESONIDE
     Dosage: 2 D/F, 2/D
     Route: 055

REACTIONS (1)
  - Vitiligo [Recovering/Resolving]
